FAERS Safety Report 8597387-5 (Version None)
Quarter: 2012Q3

REPORT INFORMATION
  Report Type: 
  Country: None (occurrence: None)
  Receive Date: 20120801
  Receipt Date: 20120718
  Transmission Date: 20120928
  Serious: Yes (Hospitalization)
  Sender: FDA-Public Use
  Company Number: 2012-001458

PATIENT
  Age: 81 Year
  Sex: Female

DRUGS (1)
  1. ACTONEL [Suspect]
     Indication: OSTEOPOROSIS
     Dosage: ORAL
     Route: 048

REACTIONS (7)
  - ATYPICAL FEMUR FRACTURE [None]
  - BONE RESORPTION TEST ABNORMAL [None]
  - OSTEOSCLEROSIS [None]
  - FALL [None]
  - BONE PAIN [None]
  - INJURY [None]
  - EXOSTOSIS [None]
